FAERS Safety Report 22214387 (Version 1)
Quarter: 2023Q2

REPORT INFORMATION
  Report Type: Spontaneous
  Country: CN (occurrence: CN)
  Receive Date: 20230414
  Receipt Date: 20230414
  Transmission Date: 20230721
  Serious: Yes (Life-Threatening, Other)
  Sender: FDA-Public Use
  Company Number: CN-009507513-2304CHN004955

PATIENT
  Sex: Female
  Weight: 55 kg

DRUGS (3)
  1. JANUVIA [Suspect]
     Active Substance: SITAGLIPTIN PHOSPHATE
     Indication: Blood glucose abnormal
     Dosage: 100 MILLIGRAM, QD
     Route: 048
     Dates: start: 20220901, end: 20230111
  2. AMARYL [Suspect]
     Active Substance: GLIMEPIRIDE
     Indication: Blood glucose abnormal
     Dosage: 2 MILLIGRAM, QM
     Route: 048
     Dates: start: 20220901, end: 20230111
  3. GLUCOPHAGE [Suspect]
     Active Substance: METFORMIN HYDROCHLORIDE
     Indication: Blood glucose abnormal
     Dosage: 500 MILLIGRAM, TID
     Route: 048
     Dates: start: 20220901, end: 20230111

REACTIONS (2)
  - Hypoglycaemic coma [Recovering/Resolving]
  - Type 2 diabetes mellitus [Unknown]

NARRATIVE: CASE EVENT DATE: 20230110
